FAERS Safety Report 8588724-6 (Version None)
Quarter: 2012Q3

REPORT INFORMATION
  Report Type: 
  Country: None (occurrence: None)
  Receive Date: 20120813
  Receipt Date: 20120808
  Transmission Date: 20120928
  Serious: Yes (Hospitalization, Other)
  Sender: FDA-Public Use
  Company Number: PHHY2012CA053441

PATIENT
  Sex: Female

DRUGS (7)
  1. ZOLEDRONOC ACID [Suspect]
     Dosage: YEARLY
     Route: 042
     Dates: start: 20100609
  2. ZOLEDRONOC ACID [Suspect]
     Dosage: YEARLY
     Route: 042
     Dates: start: 20090101
  3. HYDROCHLOROTHIAZIDE [Concomitant]
  4. PULMICORT [Concomitant]
  5. ZOLEDRONOC ACID [Suspect]
     Indication: OSTEOPOROSIS
     Dosage: YEARLY
     Route: 042
     Dates: start: 20081217
  6. DIOVAN [Concomitant]
  7. ZOLEDRONOC ACID [Suspect]
     Dosage: YEARLY
     Route: 042
     Dates: start: 20110823

REACTIONS (4)
  - PAIN [None]
  - BALANCE DISORDER [None]
  - FALL [None]
  - CONTUSION [None]
